FAERS Safety Report 6951264-1 (Version None)
Quarter: 2010Q3

REPORT INFORMATION
  Report Type: 
  Country: None (occurrence: None)
  Receive Date: 20100828
  Receipt Date: 20100322
  Transmission Date: 20110219
  Serious: No
  Sender: FDA-Public Use
  Company Number: US-ABBOTT-10P-163-0633706-00

PATIENT
  Sex: Male
  Weight: 105.78 kg

DRUGS (7)
  1. NIASPAN [Suspect]
     Indication: BLOOD CHOLESTEROL INCREASED
     Dates: end: 20100321
  2. NIASPAN [Suspect]
     Dosage: EVERY NIGHT
     Dates: start: 20100321
  3. MUSCLE RELAXANT [Concomitant]
     Indication: BACK PAIN
  4. ZANTAC [Concomitant]
     Indication: GASTROOESOPHAGEAL REFLUX DISEASE
  5. IBUPROFEN [Concomitant]
     Indication: ARTHRITIS
  6. LISINOPRIL [Concomitant]
     Indication: HYPERTENSION
  7. OMEGA THREE'S [Concomitant]
     Indication: PRODUCT USED FOR UNKNOWN INDICATION

REACTIONS (6)
  - DIARRHOEA [None]
  - FOOD POISONING [None]
  - HAEMORRHOIDAL HAEMORRHAGE [None]
  - MUSCLE SPASMS [None]
  - SENSORY DISTURBANCE [None]
  - VOMITING [None]
